FAERS Safety Report 25102770 (Version 3)
Quarter: 2025Q2

REPORT INFORMATION
  Report Type: Spontaneous
  Country: US (occurrence: US)
  Receive Date: 20250321
  Receipt Date: 20250501
  Transmission Date: 20250716
  Serious: Yes (Other)
  Sender: NOVO NORDISK
  Company Number: US-NOVOPROD-1391520

PATIENT
  Age: 78 Year
  Sex: Female
  Weight: 90.249 kg

DRUGS (12)
  1. VALACYCLOVIR [Concomitant]
     Active Substance: VALACYCLOVIR HYDROCHLORIDE
     Indication: Herpes ophthalmic
  2. ATORVASTATIN [Concomitant]
     Active Substance: ATORVASTATIN
     Indication: Blood cholesterol increased
  3. IRBESARTAN [Concomitant]
     Active Substance: IRBESARTAN
     Indication: Hypertension
  4. HYDROXYZINE [Concomitant]
     Active Substance: HYDROXYZINE HYDROCHLORIDE
     Indication: Pruritus
  5. METOPROLOL [Concomitant]
     Active Substance: METOPROLOL
     Indication: Arrhythmia
  6. ELIQUIS [Concomitant]
     Active Substance: APIXABAN
     Indication: Blood disorder
  7. JARDIANCE [Concomitant]
     Active Substance: EMPAGLIFLOZIN
     Indication: Blood glucose decreased
  8. CHLORTHALIDONE [Concomitant]
     Active Substance: CHLORTHALIDONE
     Indication: Blood cholesterol increased
  9. OZEMPIC [Suspect]
     Active Substance: SEMAGLUTIDE
     Indication: Diabetes mellitus
     Dates: start: 20240210
  10. OZEMPIC [Suspect]
     Active Substance: SEMAGLUTIDE
     Indication: Atrial fibrillation
  11. OZEMPIC [Suspect]
     Active Substance: SEMAGLUTIDE
  12. OZEMPIC [Suspect]
     Active Substance: SEMAGLUTIDE
     Dates: end: 20250324

REACTIONS (23)
  - Cerebral atrophy [Unknown]
  - Paranasal sinus injury [Unknown]
  - Venous angioma of brain [Unknown]
  - Cataract [Unknown]
  - Angina pectoris [Not Recovered/Not Resolved]
  - Painful respiration [Not Recovered/Not Resolved]
  - Arthralgia [Not Recovered/Not Resolved]
  - Breast pain [Not Recovered/Not Resolved]
  - Dyspnoea [Unknown]
  - Cough [Unknown]
  - Fall [Recovered/Resolved]
  - Spinal column injury [Recovered/Resolved]
  - Limb injury [Not Recovered/Not Resolved]
  - Joint injury [Recovering/Resolving]
  - Muscle strain [Recovered/Resolved]
  - Joint swelling [Not Recovered/Not Resolved]
  - Food poisoning [Recovered/Resolved]
  - Headache [Unknown]
  - Flatulence [Unknown]
  - Glycosylated haemoglobin increased [Unknown]
  - Dizziness [Unknown]
  - Vomiting [Not Recovered/Not Resolved]
  - Gastrooesophageal reflux disease [Not Recovered/Not Resolved]

NARRATIVE: CASE EVENT DATE: 20241130
